FAERS Safety Report 7484160-4 (Version None)
Quarter: 2011Q2

REPORT INFORMATION
  Report Type: 
  Country: None (occurrence: None)
  Receive Date: 20110517
  Receipt Date: 20110504
  Transmission Date: 20111010
  Serious: Yes (Hospitalization, Other)
  Sender: FDA-Public Use
  Company Number: US-ELI_LILLY_AND_COMPANY-US201105001607

PATIENT
  Age: 48 Year
  Sex: Female

DRUGS (7)
  1. ADVIL LIQUI-GELS [Concomitant]
  2. VALIUM [Concomitant]
  3. SOMA [Concomitant]
  4. DILAUDID [Concomitant]
  5. VITAMINS NOS [Concomitant]
  6. CYMBALTA [Suspect]
     Indication: DEPRESSION
     Dosage: 60 MG, BID
     Dates: start: 20050101, end: 20110201
  7. DOXEPIN [Concomitant]

REACTIONS (5)
  - WRIST FRACTURE [None]
  - HOSPITALISATION [None]
  - LOSS OF CONSCIOUSNESS [None]
  - FALL [None]
  - COLITIS [None]
